FAERS Safety Report 24206004 (Version 10)
Quarter: 2025Q2

REPORT INFORMATION
  Report Type: Spontaneous
  Country: US (occurrence: US)
  Receive Date: 20240813
  Receipt Date: 20250605
  Transmission Date: 20250716
  Serious: Yes (Life-Threatening, Hospitalization, Other)
  Sender: PFIZER
  Company Number: US-PFIZER INC-202400234164

PATIENT
  Age: 73 Year
  Sex: Female

DRUGS (4)
  1. COLESTIPOL HYDROCHLORIDE [Suspect]
     Active Substance: COLESTIPOL HYDROCHLORIDE
     Indication: Bile acid malabsorption
     Dates: start: 2015
  2. COLESTIPOL HYDROCHLORIDE [Suspect]
     Active Substance: COLESTIPOL HYDROCHLORIDE
     Indication: Acid base balance abnormal
     Dosage: 1 G, 2X/DAY (1 TAB EVERY MORNING, 1 TAB EVERY NIGHT)
     Dates: start: 202408
  3. COLESTIPOL HYDROCHLORIDE [Suspect]
     Active Substance: COLESTIPOL HYDROCHLORIDE
     Dates: start: 202408
  4. INSULIN NOS [Concomitant]
     Active Substance: INSULIN NOS

REACTIONS (32)
  - Near death experience [Unknown]
  - Anaphylactic shock [Unknown]
  - Headache [Unknown]
  - Dehydration [Unknown]
  - Nausea [Unknown]
  - Psychotic disorder [Unknown]
  - Deafness [Unknown]
  - Drug ineffective [Unknown]
  - Poor quality product administered [Unknown]
  - Intentional dose omission [Unknown]
  - Hypersensitivity [Not Recovered/Not Resolved]
  - Sleep disorder [Unknown]
  - Depression [Unknown]
  - Illness [Unknown]
  - Aneurysm [Unknown]
  - Hypertension [Unknown]
  - Pain [Unknown]
  - Abdominal distension [Unknown]
  - Swelling [Unknown]
  - Diarrhoea [Unknown]
  - Dizziness [Unknown]
  - Condition aggravated [Unknown]
  - Muscle spasms [Unknown]
  - Malaise [Unknown]
  - Functional gastrointestinal disorder [Unknown]
  - Incontinence [Unknown]
  - Abdominal pain upper [Not Recovered/Not Resolved]
  - Balance disorder [Unknown]
  - Flank pain [Unknown]
  - Urticaria [Unknown]
  - Product odour abnormal [Unknown]
  - Product contamination [Unknown]

NARRATIVE: CASE EVENT DATE: 20250201
